FAERS Safety Report 18559831 (Version 1)
Quarter: 2020Q4

REPORT INFORMATION
  Report Type: Spontaneous
  Country: SE (occurrence: SE)
  Receive Date: 20201130
  Receipt Date: 20201130
  Transmission Date: 20210114
  Serious: Yes (Other)
  Sender: FDA-Public Use
  Company Number: SE-PFIZER INC-2020467072

PATIENT
  Age: 51 Year
  Sex: Male

DRUGS (3)
  1. CITODON [CODEINE PHOSPHATE HEMIHYDRATE;PARACETAMOL] [Concomitant]
     Active Substance: ACETAMINOPHEN\CODEINE PHOSPHATE
     Dosage: UNK, AS NEEDED (1 TABLET AS NEEDED, MAXIMUM 8 TABLETS PER DAY ORALLY)
     Route: 048
  2. VENLAFAXINE HCL [Suspect]
     Active Substance: VENLAFAXINE HYDROCHLORIDE
     Indication: ANXIETY
     Dosage: 225 MG, DAILY
     Route: 048
  3. XANOR [Concomitant]
     Active Substance: ALPRAZOLAM
     Dosage: 0.25 MG, AS NEEDED  (1 TABLET AS NEEDED ORALLY)
     Route: 048

REACTIONS (4)
  - Micturition disorder [Unknown]
  - Accommodation disorder [Unknown]
  - Headache [Unknown]
  - Libido disorder [Unknown]

NARRATIVE: CASE EVENT DATE: 2020
